FAERS Safety Report 14567414 (Version 3)
Quarter: 2018Q4

REPORT INFORMATION
  Report Type: Spontaneous
  Country: ES (occurrence: ES)
  Receive Date: 20180223
  Receipt Date: 20181123
  Transmission Date: 20190204
  Serious: Yes (Disabling, Other)
  Sender: FDA-Public Use
  Company Number: ES-AMGEN-ESPSP2018022625

PATIENT
  Age: 74 Year
  Sex: Female

DRUGS (1)
  1. PROLIA [Suspect]
     Active Substance: DENOSUMAB
     Indication: OSTEOPOROSIS POSTMENOPAUSAL
     Dosage: 60 MG, Q6MO
     Route: 058
     Dates: start: 201403, end: 201503

REACTIONS (3)
  - Dental care [Unknown]
  - Rebound effect [Not Recovered/Not Resolved]
  - Pathological fracture [Unknown]

NARRATIVE: CASE EVENT DATE: 201609
